FAERS Safety Report 13409455 (Version 3)
Quarter: 2019Q3

REPORT INFORMATION
  Report Type: Spontaneous
  Country: US (occurrence: US)
  Receive Date: 20170406
  Receipt Date: 20190822
  Transmission Date: 20191004
  Serious: No
  Sender: FDA-Public Use
  Company Number: US-JNJFOC-20170126638

PATIENT
  Age: 21 Year
  Sex: Male

DRUGS (5)
  1. RISPERDAL [Suspect]
     Active Substance: RISPERIDONE
     Indication: ANTISOCIAL PERSONALITY DISORDER
     Dosage: VARYING DOSE OF 01 AND 02 MG
     Route: 048
     Dates: start: 20060711, end: 20070214
  2. RISPERIDONE. [Suspect]
     Active Substance: RISPERIDONE
     Dosage: VARYING DOSE OF 02 AND 03 MG
     Route: 065
     Dates: start: 20130625, end: 20150601
  3. RISPERDAL [Suspect]
     Active Substance: RISPERIDONE
     Indication: IMPULSIVE BEHAVIOUR
     Route: 048
     Dates: start: 20130129, end: 20150601
  4. RISPERIDONE. [Suspect]
     Active Substance: RISPERIDONE
     Indication: ANTISOCIAL PERSONALITY DISORDER
     Dosage: VARYING DOSE OF 01 AND 02 MG
     Route: 065
     Dates: start: 20130129, end: 20130416
  5. RISPERDAL [Suspect]
     Active Substance: RISPERIDONE
     Indication: AGGRESSION
     Route: 048
     Dates: start: 20060711, end: 20070217

REACTIONS (4)
  - Blood cholesterol abnormal [Unknown]
  - Gynaecomastia [Unknown]
  - Emotional distress [Unknown]
  - Weight increased [Unknown]

NARRATIVE: CASE EVENT DATE: 20130305
